FAERS Safety Report 5413260-5 (Version None)
Quarter: 2007Q3

REPORT INFORMATION
  Report Type: 
  Country: None (occurrence: None)
  Receive Date: 20070814
  Receipt Date: 20070611
  Transmission Date: 20080115
  Serious: No
  Sender: FDA-Public Use
  Company Number: US-KINGPHARMUSA00001-K200700715

PATIENT

DRUGS (9)
  1. DELESTROGEN [Suspect]
     Indication: BLOOD OESTROGEN DECREASED
     Dosage: 1 MM EVERY 4 DAYS
     Dates: start: 20040101
  2. DELESTROGEN [Suspect]
     Dosage: 1 MM EVERY 7 DAYS
     Dates: end: 20070401
  3. DELESTROGEN [Suspect]
     Dosage: 1 MM EVERY 7 DAYS
     Dates: start: 20070401
  4. DELESTROGEN [Suspect]
     Dosage: 1 MM EVERY 7 DAYS
     Dates: start: 20070501
  5. PAIN PILLS [Concomitant]
     Indication: CARPAL TUNNEL SYNDROME
     Dosage: UNK, PRN
  6. SYNTHROID [Concomitant]
     Indication: THYROID DISORDER
  7. WATER RETENTION PILL [Concomitant]
     Indication: FLUID RETENTION
  8. PROZAC [Concomitant]
  9. WELLBUTRIN SL   /00700501/ [Concomitant]

REACTIONS (7)
  - COMMUNICATION DISORDER [None]
  - CONFUSIONAL STATE [None]
  - DISTURBANCE IN ATTENTION [None]
  - DRUG INEFFECTIVE [None]
  - DYSPEPSIA [None]
  - SPEECH DISORDER [None]
  - THINKING ABNORMAL [None]
